FAERS Safety Report 8999140 (Version 3)
Quarter: 2013Q1

REPORT INFORMATION
  Report Type: Spontaneous
  Country: DE (occurrence: DE)
  Receive Date: 20130103
  Receipt Date: 20130121
  Transmission Date: 20140127
  Serious: Yes (Hospitalization)
  Sender: FDA-Public Use
  Company Number: DE-JNJFOC-20130100556

PATIENT
  Sex: Female
  Weight: 96 kg

DRUGS (12)
  1. XARELTO [Suspect]
     Indication: CEREBROVASCULAR ACCIDENT PROPHYLAXIS
     Route: 048
     Dates: start: 201208, end: 20121210
  2. XARELTO [Suspect]
     Indication: ATRIAL FIBRILLATION
     Route: 048
     Dates: start: 201208, end: 20121210
  3. EXENATIDE [Concomitant]
     Indication: DIABETES MELLITUS
     Route: 065
  4. EXENATIDE [Concomitant]
     Indication: DIABETES MELLITUS
     Dosage: 1 X 40 SATURGAYS
     Route: 065
  5. EXENATIDE [Concomitant]
     Indication: PRODUCT USED FOR UNKNOWN INDICATION
     Dosage: 1 X 40 SATURGAYS
     Route: 065
  6. EXENATIDE [Concomitant]
     Indication: PRODUCT USED FOR UNKNOWN INDICATION
     Route: 065
  7. NIFEDIPIN [Concomitant]
     Indication: HYPERTENSION
     Route: 065
  8. MOXONIDINE [Concomitant]
     Indication: HYPERTENSION
     Dosage: IN EVENING
     Route: 065
  9. SIMVAHEXAL [Concomitant]
     Indication: HYPERLIPIDAEMIA
     Dosage: IN EVENING
     Route: 065
  10. BISOHEXAL (BISOPROLOL HEMIFUMARATE) [Concomitant]
     Indication: HYPERTENSION
     Dosage: IN MORNING
     Route: 065
  11. DIGITOXIN [Concomitant]
     Indication: ATRIAL FIBRILLATION
     Dosage: IN MORNING
     Route: 065
  12. LEVEMIR [Concomitant]
     Indication: DIABETES MELLITUS
     Route: 065

REACTIONS (2)
  - Renal haemorrhage [Not Recovered/Not Resolved]
  - Pain [Not Recovered/Not Resolved]
